FAERS Safety Report 7688414-8 (Version None)
Quarter: 2011Q3

REPORT INFORMATION
  Report Type: 
  Country: None (occurrence: None)
  Receive Date: 20110817
  Receipt Date: 20110815
  Transmission Date: 20111222
  Serious: Yes (Other)
  Sender: FDA-Public Use
  Company Number: US-PFIZER INC-2011187473

PATIENT
  Sex: Female
  Weight: 72.562 kg

DRUGS (14)
  1. SEROQUEL [Concomitant]
     Dosage: UNK
  2. NEURONTIN [Suspect]
     Indication: FIBROMYALGIA
     Dosage: UNK
     Route: 048
     Dates: start: 20020101
  3. LYRICA [Suspect]
     Dosage: 50 MG, 3X/DAY
     Route: 048
  4. PREVACID [Concomitant]
     Dosage: UNK
  5. TOPROL-XL [Concomitant]
     Dosage: UNK
  6. LYRICA [Suspect]
     Dosage: 100 MG, 3X/DAY
     Route: 048
  7. PROZAC [Concomitant]
     Dosage: UNK
  8. PREMARIN [Concomitant]
     Dosage: UNK
  9. NEURONTIN [Suspect]
     Dosage: 300 MG, 2X/DAY
     Route: 048
     Dates: end: 20060101
  10. METFORMIN [Concomitant]
     Dosage: UNK
  11. CLONAZEPAM [Concomitant]
     Dosage: UNK
  12. RITALIN [Concomitant]
     Dosage: UNK
  13. AMITIZA [Concomitant]
     Dosage: 24 UG, 2X/DAY
  14. LYRICA [Suspect]
     Indication: FIBROMYALGIA
     Dosage: 50 MG, 2X/DAY
     Route: 048

REACTIONS (10)
  - PAIN [None]
  - DRUG EFFECT DECREASED [None]
  - SWELLING FACE [None]
  - WEIGHT INCREASED [None]
  - TRIGEMINAL NEURALGIA [None]
  - SKIN DISCOMFORT [None]
  - JOINT SWELLING [None]
  - TYPE 2 DIABETES MELLITUS [None]
  - SWELLING [None]
  - OEDEMA PERIPHERAL [None]
